FAERS Safety Report 9550245 (Version 1)
Quarter: 2013Q3

REPORT INFORMATION
  Report Type: Spontaneous
  Country: US (occurrence: US)
  Receive Date: 20130924
  Receipt Date: 20130924
  Transmission Date: 20140515
  Serious: No
  Sender: FDA-Public Use
  Company Number: US-SANOFI-AVENTIS-2013SA065717

PATIENT
  Sex: Female

DRUGS (2)
  1. AUBAGIO [Suspect]
  2. ORAL CONTRACEPTIVE NOS [Suspect]

REACTIONS (1)
  - Depression [Unknown]
